FAERS Safety Report 24321943 (Version 3)
Quarter: 2025Q1

REPORT INFORMATION
  Report Type: Report from Study
  Country: JP (occurrence: JP)
  Receive Date: 20240916
  Receipt Date: 20250319
  Transmission Date: 20250408
  Serious: Yes (Death, Hospitalization, Other)
  Sender: UCB
  Company Number: JP-UCBJ-CD202408242UCBPHAPROD

PATIENT
  Age: 3 Year
  Sex: Male
  Weight: 14 kg

DRUGS (12)
  1. FENFLURAMINE HYDROCHLORIDE [Suspect]
     Active Substance: FENFLURAMINE HYDROCHLORIDE
     Indication: Severe myoclonic epilepsy of infancy
     Dosage: 0.1 MILLIGRAM/KILOGRAM, 2X/DAY (BID)
     Route: 048
     Dates: start: 20230309, end: 20230322
  2. FENFLURAMINE HYDROCHLORIDE [Suspect]
     Active Substance: FENFLURAMINE HYDROCHLORIDE
     Dosage: 0.15 MILLIGRAM/KILOGRAM, 2X/DAY (BID)
     Route: 048
     Dates: start: 20230323, end: 20230405
  3. FENFLURAMINE HYDROCHLORIDE [Suspect]
     Active Substance: FENFLURAMINE HYDROCHLORIDE
     Dosage: 0.12 MILLIGRAM/KILOGRAM, 2X/DAY (BID)
     Route: 048
     Dates: start: 20230406, end: 20230419
  4. FENFLURAMINE HYDROCHLORIDE [Suspect]
     Active Substance: FENFLURAMINE HYDROCHLORIDE
     Dosage: 0.15 MILLIGRAM/KILOGRAM, 2X/DAY (BID)
     Route: 048
     Dates: start: 20230420, end: 20230510
  5. FENFLURAMINE HYDROCHLORIDE [Suspect]
     Active Substance: FENFLURAMINE HYDROCHLORIDE
     Dosage: 0.35 MILLIGRAM/KILOGRAM, 2X/DAY (BID)
     Route: 048
     Dates: start: 20230511
  6. FENFLURAMINE HYDROCHLORIDE [Suspect]
     Active Substance: FENFLURAMINE HYDROCHLORIDE
     Route: 048
     Dates: end: 20240821
  7. VALPROATE SODIUM [Concomitant]
     Active Substance: VALPROATE SODIUM
     Indication: Severe myoclonic epilepsy of infancy
     Route: 048
  8. CLOBAZAM [Concomitant]
     Active Substance: CLOBAZAM
     Indication: Severe myoclonic epilepsy of infancy
     Route: 048
  9. DIACOMIT [Concomitant]
     Active Substance: STIRIPENTOL
     Indication: Severe myoclonic epilepsy of infancy
     Route: 048
  10. DIAZEPAM [Concomitant]
     Active Substance: DIAZEPAM
     Indication: Severe myoclonic epilepsy of infancy
     Route: 054
  11. ANHIBA [Concomitant]
     Active Substance: ACETAMINOPHEN
     Indication: Pyrexia
     Route: 054
  12. FYCOMPA [Concomitant]
     Active Substance: PERAMPANEL
     Indication: Severe myoclonic epilepsy of infancy
     Route: 048
     Dates: start: 20231214

REACTIONS (4)
  - Sudden death [Fatal]
  - Status epilepticus [Recovered/Resolved]
  - Decreased appetite [Recovered/Resolved]
  - Diarrhoea [Recovering/Resolving]

NARRATIVE: CASE EVENT DATE: 20230405
